FAERS Safety Report 11776753 (Version 2)
Quarter: 2015Q4

REPORT INFORMATION
  Report Type: Report from Study
  Country: GR (occurrence: GR)
  Receive Date: 20151125
  Receipt Date: 20151125
  Transmission Date: 20160304
  Serious: Yes (Life-Threatening)
  Sender: FDA-Public Use
  Company Number: GR-SANOFI-AVENTIS-SLSD-1000110

PATIENT
  Age: 45 Year
  Sex: Female
  Weight: 62.5 kg

DRUGS (3)
  1. ELIGLUSTAT. [Suspect]
     Active Substance: ELIGLUSTAT
     Indication: GAUCHER^S DISEASE
     Dosage: 100 MG, BID
     Route: 048
     Dates: start: 20120202, end: 20121001
  2. ELIGLUSTAT. [Suspect]
     Active Substance: ELIGLUSTAT
     Indication: GAUCHER^S DISEASE
     Dosage: 100 MG, BID
     Route: 048
     Dates: start: 20121002, end: 20121116
  3. ELIGLUSTAT. [Suspect]
     Active Substance: ELIGLUSTAT
     Indication: GAUCHER^S DISEASE
     Dosage: 100 MG, BID
     Route: 048
     Dates: start: 20121219, end: 20130207

REACTIONS (1)
  - Arrhythmia [Recovered/Resolved]

NARRATIVE: CASE EVENT DATE: 20121002
